FAERS Safety Report 13802209 (Version 1)
Quarter: 2017Q3

REPORT INFORMATION
  Report Type: Spontaneous
  Country: US (occurrence: US)
  Receive Date: 20170727
  Receipt Date: 20170727
  Transmission Date: 20171127
  Serious: Yes (Other)
  Sender: FDA-Public Use
  Company Number: None

PATIENT
  Age: 48 Year
  Sex: Male
  Weight: 107.5 kg

DRUGS (8)
  1. ZYRTEC [Concomitant]
     Active Substance: CETIRIZINE HYDROCHLORIDE
  2. METFORMIN [Concomitant]
     Active Substance: METFORMIN HYDROCHLORIDE
  3. LANZOPROSAL [Concomitant]
  4. FLOW MAX [Concomitant]
  5. FLOWNASE [Concomitant]
  6. SIMSTATIN [Concomitant]
     Active Substance: SIMVASTATIN
  7. ANDROGEL [Concomitant]
     Active Substance: TESTOSTERONE
  8. BYDUREON [Suspect]
     Active Substance: EXENATIDE
     Indication: TYPE 2 DIABETES MELLITUS
     Dosage: ?          QUANTITY:1 INJECTION(S);OTHER FREQUENCY:ONCE WEEKLY;?
     Route: 058
     Dates: start: 20160101

REACTIONS (3)
  - Device malfunction [None]
  - Underdose [None]
  - Injection site pain [None]

NARRATIVE: CASE EVENT DATE: 20170727
